FAERS Safety Report 14873080 (Version 2)
Quarter: 2018Q3

REPORT INFORMATION
  Report Type: Spontaneous
  Country: US (occurrence: US)
  Receive Date: 20180510
  Receipt Date: 20180705
  Transmission Date: 20181010
  Serious: No
  Sender: FDA-Public Use
  Company Number: US-TAKEDA-2018MPI004648

PATIENT
  Age: 66 Year
  Sex: Male

DRUGS (17)
  1. ACYCLOVIR                          /00587301/ [Concomitant]
     Active Substance: ACYCLOVIR
  2. DEXAMETHASONE. [Suspect]
     Active Substance: DEXAMETHASONE
     Indication: PRODUCT USED FOR UNKNOWN INDICATION
     Dosage: UNK
     Route: 065
  3. GABAPENTIN. [Concomitant]
     Active Substance: GABAPENTIN
  4. TAMSULOSIN [Concomitant]
     Active Substance: TAMSULOSIN
  5. PREDNISONE. [Concomitant]
     Active Substance: PREDNISONE
  6. ASPIRIN. [Concomitant]
     Active Substance: ASPIRIN
  7. OMEGA 3 ACID ETHYL ESTERS [Concomitant]
     Active Substance: OMEGA-3-ACID ETHYL ESTERS
  8. ELIQUIS [Concomitant]
     Active Substance: APIXABAN
  9. ATORVASTATIN [Concomitant]
     Active Substance: ATORVASTATIN
  10. PHOSPHATES                         /01723901/ [Concomitant]
  11. FAMOTIDINE. [Concomitant]
     Active Substance: FAMOTIDINE
  12. TACROLIMUS. [Concomitant]
     Active Substance: TACROLIMUS
  13. NINLARO [Suspect]
     Active Substance: IXAZOMIB CITRATE
     Indication: PLASMA CELL MYELOMA
     Dosage: 4 MG, UNK
     Route: 048
     Dates: start: 20171111
  14. METAMUCIL [Concomitant]
     Active Substance: PLANTAGO SEED
  15. PROLIA [Concomitant]
     Active Substance: DENOSUMAB
  16. MULTIVITAMIN                       /07504101/ [Concomitant]
     Active Substance: VITAMINS
  17. VITAMIN D3 [Concomitant]
     Active Substance: CHOLECALCIFEROL

REACTIONS (2)
  - Fatigue [Not Recovered/Not Resolved]
  - Nausea [Not Recovered/Not Resolved]

NARRATIVE: CASE EVENT DATE: 20171111
